FAERS Safety Report 20551322 (Version 2)
Quarter: 2022Q2

REPORT INFORMATION
  Report Type: Report from Study
  Country: EG (occurrence: EG)
  Receive Date: 20220304
  Receipt Date: 20220617
  Transmission Date: 20220720
  Serious: Yes (Other)
  Sender: FDA-Public Use
  Company Number: EG-NOVARTISPH-NVSC2022EG051044

PATIENT
  Age: 10 Year
  Sex: Female

DRUGS (4)
  1. OMNITROPE [Suspect]
     Active Substance: SOMATROPIN
     Indication: Growth hormone deficiency
     Dosage: 1 MG, QD
     Route: 058
     Dates: start: 20220216
  2. HYDROFERRIN [Concomitant]
     Indication: Supplementation therapy
     Dosage: 1 DRP, QD
     Route: 065
     Dates: start: 20220223
  3. VITAMIN D NOS [Concomitant]
     Active Substance: VITAMIN D NOS
     Indication: Supplementation therapy
     Dosage: 1 DOSAGE FORM (ONLY ONE TABLET WAS TAKEN)
     Route: 065
     Dates: start: 20220225, end: 20220225
  4. VIDROP [Concomitant]
     Indication: Supplementation therapy
     Dosage: 5 DRP, QD
     Route: 048
     Dates: start: 20220226

REACTIONS (4)
  - Pyrexia [Recovered/Resolved]
  - Product packaging quantity issue [Unknown]
  - Incorrect dose administered [Recovered/Resolved]
  - Circumstance or information capable of leading to medication error [Recovered/Resolved]

NARRATIVE: CASE EVENT DATE: 20220216
